FAERS Safety Report 16021764 (Version 2)
Quarter: 2019Q1

REPORT INFORMATION
  Report Type: Spontaneous
  Country: CA (occurrence: CA)
  Receive Date: 20190301
  Receipt Date: 20190315
  Transmission Date: 20190418
  Serious: Yes (Hospitalization, Other)
  Sender: FDA-Public Use
  Company Number: CA-AUROBINDO-AUR-APL-2019-009963

PATIENT

DRUGS (39)
  1. ACEBUTOLOL [Suspect]
     Active Substance: ACEBUTOLOL
     Dosage: 100 MILLIGRAM, 2 EVERY 1  DAY
     Route: 065
  2. AMITRIPTYLINE [Suspect]
     Active Substance: AMITRIPTYLINE
     Indication: INSOMNIA
     Dosage: 75 MILLIGRAM, ONCE A DAY
     Route: 065
  3. ASCORBIC ACID. [Concomitant]
     Active Substance: ASCORBIC ACID
     Indication: BLADDER ABLATION
     Dosage: 500 MILLIGRAM, UNK
     Route: 065
  4. OXAZEPAM. [Suspect]
     Active Substance: OXAZEPAM
     Indication: INSOMNIA
     Dosage: 15 MILLIGRAM, ONCE A DAY
     Route: 065
  5. CYCLOBENZAPRINE. [Suspect]
     Active Substance: CYCLOBENZAPRINE
     Indication: FIBROMYALGIA
     Dosage: 5 MILLIGRAM, 1 EVERY 1 DAY
     Route: 065
  6. CYCLOBENZAPRINE. [Suspect]
     Active Substance: CYCLOBENZAPRINE
     Dosage: 5 MILLIGRAM, 3 EVERY 1 DAY
     Route: 065
  7. CARBAMAZEPINE. [Suspect]
     Active Substance: CARBAMAZEPINE
     Dosage: 100 MILLIGRAM
     Route: 065
  8. FUROSEMIDE. [Suspect]
     Active Substance: FUROSEMIDE
     Dosage: 10 MILLIGRAM, 1 EVERY 1 DAY
     Route: 065
  9. NITROGLYCERIN. [Suspect]
     Active Substance: NITROGLYCERIN
     Dosage: 0.4 MILLIGRAM, 5% DEXTROSE INJ
     Route: 065
  10. DIPYRIDAMOLE. [Concomitant]
     Active Substance: DIPYRIDAMOLE
     Indication: CEREBROVASCULAR ACCIDENT
     Dosage: 25 MILLIGRAM, 2 EVERY 1 DAY
     Route: 065
  11. ROSUVASTATIN. [Concomitant]
     Active Substance: ROSUVASTATIN
     Indication: CEREBROVASCULAR ACCIDENT
     Dosage: 20 MILLIGRAM, 2 EVERY 1 DAY
     Route: 065
  12. CARBAMAZEPINE. [Suspect]
     Active Substance: CARBAMAZEPINE
     Indication: SEIZURE
     Dosage: 200 MILLIGRAM, 2 EVERY 1 DAY
     Route: 065
  13. FUROSEMIDE. [Suspect]
     Active Substance: FUROSEMIDE
     Dosage: 40 MILLIGRAM, ONCE A DAY
     Route: 065
  14. QUINAPRIL. [Suspect]
     Active Substance: QUINAPRIL
     Indication: CORONARY ARTERY DISEASE
     Dosage: 40 MILLIGRAM, ONCE A DAY
     Route: 065
  15. GALANTAMINE. [Concomitant]
     Active Substance: GALANTAMINE
     Indication: DEMENTIA
     Dosage: 16 MILLIGRAM, ONCE A DAY
     Route: 065
  16. PHOSPHORIC ACID [Concomitant]
     Active Substance: PHOSPHORIC ACID
     Indication: CONSTIPATION
     Dosage: UNK
     Route: 065
  17. VACCINIUM MACROCARPON [Concomitant]
     Active Substance: CRANBERRY
     Indication: BLADDER ABLATION
     Dosage: 500 MILLIGRAM
     Route: 065
  18. AMLODIPINE [Suspect]
     Active Substance: AMLODIPINE BESYLATE
     Indication: CORONARY ARTERY DISEASE
     Dosage: 5 MILLIGRAM, 1 EVERY 1 DAY
     Route: 065
  19. ACEBUTOLOL [Suspect]
     Active Substance: ACEBUTOLOL
     Indication: CORONARY ARTERY DISEASE
     Dosage: 200 MILLIGRAM, 2 EVERY 1 DAY
     Route: 065
  20. FUROSEMIDE. [Suspect]
     Active Substance: FUROSEMIDE
     Indication: OEDEMA
     Dosage: 20 MILLIGRAM, 1 EVERY 1 DAY
     Route: 065
  21. NITROGLYCERIN. [Suspect]
     Active Substance: NITROGLYCERIN
     Dosage: UNK
     Route: 042
  22. ACETAMINOPHEN. [Concomitant]
     Active Substance: ACETAMINOPHEN
     Indication: FIBROMYALGIA
     Dosage: 650 MILLIGRAM
     Route: 065
  23. DIPYRIDAMOLE. [Concomitant]
     Active Substance: DIPYRIDAMOLE
     Dosage: 200 MILLIGRAM, 2 EVERY 1 DAY
     Route: 065
  24. MAGNESIUM HYDROXIDE. [Concomitant]
     Active Substance: MAGNESIUM HYDROXIDE
     Indication: CONSTIPATION
     Dosage: 311 MILLIGRAM
     Route: 065
  25. SALBUTAMOL [Concomitant]
     Active Substance: ALBUTEROL
     Indication: PRODUCT USED FOR UNKNOWN INDICATION
     Dosage: 100 MICROGRAM
     Route: 065
  26. AMITRIPTYLINE [Suspect]
     Active Substance: AMITRIPTYLINE
     Indication: INSOMNIA
     Dosage: 75 MILLIGRAM, ONCE A DAY
     Route: 065
  27. BISACODYL. [Concomitant]
     Active Substance: BISACODYL
     Indication: CONSTIPATION
     Dosage: UNK
     Route: 065
  28. GLUCOSAMINE [Concomitant]
     Active Substance: GLUCOSAMINE
     Indication: ARTHRITIS
     Dosage: 500 MILLIGRAM, 2 EVERY 1 DAY
     Route: 065
  29. GLYCEROL [Concomitant]
     Active Substance: GLYCERIN
     Indication: CONSTIPATION
     Dosage: UNK
     Route: 065
  30. LEVOTHYROXINE. [Concomitant]
     Active Substance: LEVOTHYROXINE
     Indication: THYROID DISORDER
     Dosage: 0.088 MILLIGRAM, 1 EVERY 1 DAY
     Route: 065
  31. POTASSIUM SORBATE [Concomitant]
     Active Substance: POTASSIUM SORBATE
     Indication: CONSTIPATION
     Dosage: UNK
     Route: 065
  32. DILTIAZEM. [Suspect]
     Active Substance: DILTIAZEM
     Indication: CORONARY ARTERY DISEASE
     Dosage: 360 MILLIGRAM, ONCE A DAY
     Route: 065
  33. MORPHINE [Suspect]
     Active Substance: MORPHINE
     Indication: FIBROMYALGIA
     Dosage: 10 MILLIGRAM
     Route: 065
  34. LEVOFLOXACIN. [Concomitant]
     Active Substance: LEVOFLOXACIN
     Indication: URINARY TRACT INFECTION
     Dosage: 250 MILLIGRAM, ONCE A DAY
     Route: 065
  35. NITROGLYCERIN. [Suspect]
     Active Substance: NITROGLYCERIN
     Indication: CORONARY ARTERY DISEASE
     Dosage: UNK, 5% DEXTROSE INJ
     Route: 065
  36. LACTULOSE. [Concomitant]
     Active Substance: LACTULOSE
     Indication: CONSTIPATION
     Dosage: 15 MILLILITER, ONCE A DAY
     Route: 065
  37. OMEPRAZOLE. [Concomitant]
     Active Substance: OMEPRAZOLE
     Indication: DUODENAL ULCER
     Dosage: 20 MILLIGRAM, ONCE A DAY
     Route: 065
  38. SODIUM BENZOATE [Concomitant]
     Active Substance: SODIUM BENZOATE
     Indication: CONSTIPATION
     Dosage: UNK
     Route: 065
  39. TIOTROPIUM [Concomitant]
     Active Substance: TIOTROPIUM
     Indication: PRODUCT USED FOR UNKNOWN INDICATION
     Dosage: 18 MICROGRAM, ONCE A DAY
     Route: 065

REACTIONS (2)
  - Orthostatic hypotension [Recovered/Resolved]
  - Bladder disorder [Recovered/Resolved]
